FAERS Safety Report 9026813 (Version 1)
Quarter: 2013Q1

REPORT INFORMATION
  Report Type: Spontaneous
  Country: AU (occurrence: AU)
  Receive Date: 20130123
  Receipt Date: 20130123
  Transmission Date: 20140127
  Serious: Yes (Other)
  Sender: FDA-Public Use
  Company Number: AU-PFIZER INC-2013024573

PATIENT
  Age: 4 Decade
  Sex: Male

DRUGS (2)
  1. EFEXOR XR [Suspect]
     Dosage: 37.5 MG, UNK
  2. EFEXOR XR [Suspect]
     Dosage: 75 MG, UNK
     Dates: end: 201212

REACTIONS (8)
  - Drug ineffective [Unknown]
  - Suicidal ideation [Unknown]
  - Loss of consciousness [Unknown]
  - Anger [Unknown]
  - Aggression [Unknown]
  - Withdrawal syndrome [Unknown]
  - Feeling abnormal [Unknown]
  - Intentional overdose [Unknown]
